FAERS Safety Report 4472626-0 (Version None)
Quarter: 2004Q4

REPORT INFORMATION
  Report Type: 
  Country: None (occurrence: None)
  Receive Date: 20041008
  Receipt Date: 20040929
  Transmission Date: 20050328
  Serious: Yes (Death)
  Sender: FDA-Public Use
  Company Number: 167-20785-04100038

PATIENT
  Age: 67 Year
  Sex: Male

DRUGS (9)
  1. THALOMID [Suspect]
     Indication: SMALL CELL LUNG CANCER STAGE UNSPECIFIED
     Dosage: ORAL
     Route: 048
  2. CARBOPLATIN [Suspect]
     Indication: SMALL CELL LUNG CANCER STAGE UNSPECIFIED
     Dosage: 655 MG, DAILY, INTRAVENOUS
     Route: 042
     Dates: start: 20040906, end: 20040906
  3. ETOPOSIDE [Suspect]
     Indication: SMALL CELL LUNG CANCER STAGE UNSPECIFIED
     Dosage: SEE IMAGE
     Route: 042
     Dates: start: 20040906, end: 20040906
  4. ETOPOSIDE [Suspect]
     Indication: SMALL CELL LUNG CANCER STAGE UNSPECIFIED
     Dosage: SEE IMAGE
     Route: 042
     Dates: start: 20040907, end: 20040908
  5. QUININE SULFATE (QUININE SULFATE) [Concomitant]
  6. DIHYDROCODEINE TARTRATE (DIHYDROCODEINE BITARTRATE) [Concomitant]
  7. CO-DYDRAMOL (PARAMOL-118) [Concomitant]
  8. DICLOFENAC SODIUM [Concomitant]
  9. VENTOLIN [Concomitant]

REACTIONS (2)
  - CIRCULATORY COLLAPSE [None]
  - RESUSCITATION [None]
